FAERS Safety Report 4450212-6 (Version None)
Quarter: 2004Q3

REPORT INFORMATION
  Report Type: 
  Country: None (occurrence: None)
  Receive Date: 20040914
  Receipt Date: 20040909
  Transmission Date: 20050211
  Serious: Yes (Death, Life-Threatening, Hospitalization)
  Sender: FDA-Public Use
  Company Number: 04USA0209

PATIENT
  Age: 70 Year
  Sex: Female

DRUGS (2)
  1. AGGRASTAT [Suspect]
     Indication: ACUTE CORONARY SYNDROME
     Dosage: 1 X DOSE, IV
     Route: 042
     Dates: start: 20040710, end: 20040710
  2. CLOPIDOGREL BISULFATE [Concomitant]

REACTIONS (3)
  - ACUTE MYOCARDIAL INFARCTION [None]
  - CARDIOGENIC SHOCK [None]
  - HAEMORRHAGE [None]
